FAERS Safety Report 9732190 (Version 1)
Quarter: 2013Q4

REPORT INFORMATION
  Report Type: Spontaneous
  Country: US (occurrence: US)
  Receive Date: 20131204
  Receipt Date: 20131204
  Transmission Date: 20140711
  Serious: No
  Sender: FDA-Public Use
  Company Number: US-PFIZER INC-2013341862

PATIENT
  Age: 22 Year
  Sex: Female
  Weight: 52.15 kg

DRUGS (1)
  1. VIBRAMYCIN [Suspect]
     Indication: LYME DISEASE
     Dosage: 100 MG, 2X/DAY
     Dates: start: 201311

REACTIONS (3)
  - Dyspnoea [Unknown]
  - Diarrhoea [Unknown]
  - Nausea [Unknown]
